FAERS Safety Report 18456232 (Version 6)
Quarter: 2021Q1

REPORT INFORMATION
  Report Type: Report from Study
  Country: US (occurrence: US)
  Receive Date: 20201103
  Receipt Date: 20210318
  Transmission Date: 20210419
  Serious: No
  Sender: FDA-Public Use
  Company Number: NVSC2020US294304

PATIENT
  Age: 35 Year
  Sex: Female

DRUGS (1)
  1. KESIMPTA [Suspect]
     Active Substance: OFATUMUMAB
     Indication: MULTIPLE SCLEROSIS
     Dosage: 20 MG
     Route: 058
     Dates: start: 20201001

REACTIONS (4)
  - Dizziness [Recovered/Resolved]
  - Fatigue [Recovering/Resolving]
  - Intercepted product administration error [Unknown]
  - Depressed mood [Unknown]

NARRATIVE: CASE EVENT DATE: 20201001
